FAERS Safety Report 20174188 (Version 1)
Quarter: 2021Q4

REPORT INFORMATION
  Report Type: Spontaneous
  Country: US (occurrence: US)
  Receive Date: 20211213
  Receipt Date: 20211213
  Transmission Date: 20220304
  Serious: Yes (Other)
  Sender: FDA-Public Use
  Company Number: US-CELGENE-USA-20211202151

PATIENT
  Sex: Male
  Weight: 68.100 kg

DRUGS (9)
  1. REVLIMID [Suspect]
     Active Substance: LENALIDOMIDE
     Indication: Plasma cell myeloma
     Dosage: 5 MILLIGRAM
     Route: 048
     Dates: start: 20210729
  2. LACTASE [Concomitant]
     Active Substance: LACTASE
     Indication: Product used for unknown indication
     Route: 065
  3. BACTRIM [Concomitant]
     Active Substance: SULFAMETHOXAZOLE\TRIMETHOPRIM
     Indication: Product used for unknown indication
     Route: 065
  4. ASPIRIN [Concomitant]
     Active Substance: ASPIRIN
     Indication: Product used for unknown indication
     Route: 065
  5. ZINC PICOLINATE [Concomitant]
     Active Substance: ZINC PICOLINATE
     Indication: Product used for unknown indication
     Route: 065
  6. VITAMIN B COMPLEX [Concomitant]
     Active Substance: CYANOCOBALAMIN\DEXPANTHENOL\NIACINAMIDE\PYRIDOXINE HYDROCHLORIDE\RIBOFLAVIN 5^-PHOSPHATE SODIUM\THIA
     Indication: Product used for unknown indication
     Route: 065
  7. DEGLYCYRRHIZINISED LIQUORICE [Concomitant]
     Indication: Product used for unknown indication
     Route: 065
  8. BROMELAINS [Concomitant]
     Active Substance: BROMELAINS
     Indication: Product used for unknown indication
     Route: 065
  9. FISH OIL [Concomitant]
     Active Substance: FISH OIL
     Indication: Product used for unknown indication
     Route: 065

REACTIONS (3)
  - Neuropathy peripheral [Not Recovered/Not Resolved]
  - Anxiety [Not Recovered/Not Resolved]
  - Fatigue [Not Recovered/Not Resolved]

NARRATIVE: CASE EVENT DATE: 20210101
